FAERS Safety Report 9719449 (Version 3)
Quarter: 2013Q4

REPORT INFORMATION
  Report Type: Report from Study
  Country: CL (occurrence: CL)
  Receive Date: 20131128
  Receipt Date: 20131226
  Transmission Date: 20140711
  Serious: Yes (Hospitalization, Other)
  Sender: FDA-Public Use
  Company Number: CL-ROCHE-1301193

PATIENT
  Age: 4 Year
  Sex: Male

DRUGS (7)
  1. ACTEMRA [Suspect]
     Indication: JUVENILE IDIOPATHIC ARTHRITIS
     Dosage: HOSPITALIZED IN ORDER TO RECEIVE A DOSE OF 200 MG (DOSE INCREASED)
     Route: 042
     Dates: start: 201106, end: 20131106
  2. ACTEMRA [Suspect]
     Dosage: REPORTED ON 30-JUL-2013
     Route: 065
     Dates: start: 201105, end: 201308
  3. ACTEMRA [Suspect]
     Dosage: REPORTED ON 17-AUG-2013 AND LAST DOSE WAS ADMINISTERED ON 16-AUG-2013.
     Route: 065
  4. ACTEMRA [Suspect]
     Route: 065
  5. CYCLOSPORINE [Suspect]
     Indication: JUVENILE IDIOPATHIC ARTHRITIS
     Route: 065
  6. PREDNISONE [Suspect]
     Indication: JUVENILE IDIOPATHIC ARTHRITIS
     Route: 048
     Dates: start: 201204
  7. XELODA [Concomitant]
     Route: 065

REACTIONS (14)
  - Bursa disorder [Unknown]
  - Synovitis [Unknown]
  - Myositis [Unknown]
  - Cushingoid [Unknown]
  - Nasopharyngitis [Recovered/Resolved]
  - Arthritis [Unknown]
  - Upper respiratory tract infection [Unknown]
  - Inflammation [Unknown]
  - Anaemia [Unknown]
  - Thrombocytosis [Unknown]
  - Polymerase chain reaction [Unknown]
  - Drug ineffective [Unknown]
  - Erythema [Unknown]
  - Hair growth abnormal [Unknown]
